FAERS Safety Report 20832355 (Version 2)
Quarter: 2022Q2

REPORT INFORMATION
  Report Type: Spontaneous
  Country: ES (occurrence: ES)
  Receive Date: 20220516
  Receipt Date: 20220606
  Transmission Date: 20220721
  Serious: Yes (Other)
  Sender: FDA-Public Use
  Company Number: ES-CINFAGATEW-2022000893

PATIENT
  Age: 5 Year
  Sex: Male

DRUGS (1)
  1. MONTELUKAST SODIUM [Suspect]
     Active Substance: MONTELUKAST SODIUM
     Indication: Asthma
     Dosage: UNK
     Dates: start: 202112, end: 20220123

REACTIONS (12)
  - Nightmare [Not Recovered/Not Resolved]
  - Abnormal behaviour [Recovering/Resolving]
  - Tic [Recovering/Resolving]
  - Drooling [Recovering/Resolving]
  - Stereotypy [Recovering/Resolving]
  - Thinking abnormal [Recovering/Resolving]
  - Hypokinesia [Recovering/Resolving]
  - Nervousness [Recovering/Resolving]
  - Condition aggravated [Recovering/Resolving]
  - Panic attack [Recovering/Resolving]
  - Autism spectrum disorder [Recovering/Resolving]
  - Repetitive speech [Not Recovered/Not Resolved]

NARRATIVE: CASE EVENT DATE: 20211201
